FAERS Safety Report 19210394 (Version 1)
Quarter: 2021Q2

REPORT INFORMATION
  Report Type: Spontaneous
  Country: GB (occurrence: GB)
  Receive Date: 20210504
  Receipt Date: 20210504
  Transmission Date: 20210717
  Serious: Yes (Hospitalization)
  Sender: FDA-Public Use
  Company Number: GB-ORGANON-O2105GBR000018

PATIENT
  Age: 69 Year
  Sex: Female

DRUGS (5)
  1. MONTELUKAST SODIUM. [Concomitant]
     Active Substance: MONTELUKAST SODIUM
     Dosage: UNK
     Route: 048
  2. MAXALT?MLT [Suspect]
     Active Substance: RIZATRIPTAN BENZOATE
     Dosage: 1 DOSAGE FORM (10 MG), ^AS PER LICENSE^
     Route: 048
     Dates: start: 202103
  3. MAXALT?MLT [Suspect]
     Active Substance: RIZATRIPTAN BENZOATE
     Indication: MIGRAINE
     Dosage: 1 DOSAGE FORM (10 MG), ^AS PER LICENSE^
     Route: 048
     Dates: start: 201411
  4. CLENIL [BECLOMETASONE DIPROPIONATE] [Concomitant]
     Dosage: INHALER
  5. SALBUTAMOL [Concomitant]
     Active Substance: ALBUTEROL
     Dosage: UNK

REACTIONS (3)
  - Therapeutic product effect incomplete [Unknown]
  - Adverse reaction [Unknown]
  - Migraine [Unknown]

NARRATIVE: CASE EVENT DATE: 202103
